FAERS Safety Report 10177463 (Version 1)
Quarter: 2014Q2

REPORT INFORMATION
  Report Type: Spontaneous
  Country: TW (occurrence: TW)
  Receive Date: 20140516
  Receipt Date: 20140516
  Transmission Date: 20141212
  Serious: Yes (Death, Other)
  Sender: FDA-Public Use
  Company Number: PHHY2014TW059041

PATIENT
  Age: 54 Year
  Sex: Female

DRUGS (7)
  1. TOBRAMYCIN [Suspect]
     Indication: INTERSTITIAL LUNG DISEASE
  2. PREDNISOLONE [Suspect]
     Indication: INTERSTITIAL LUNG DISEASE
     Dosage: 60 MG
  3. CEFEPIME [Suspect]
     Indication: INTERSTITIAL LUNG DISEASE
  4. IMIPENEM [Suspect]
     Indication: INTERSTITIAL LUNG DISEASE
  5. CYCLOPHOSPHAMID [Suspect]
     Indication: INTERSTITIAL LUNG DISEASE
  6. IMMUNOGLOBULIN I.V [Suspect]
     Indication: INTERSTITIAL LUNG DISEASE
     Route: 042
  7. ANTIBIOTICS [Concomitant]

REACTIONS (3)
  - Death [Fatal]
  - Disseminated intravascular coagulation [Unknown]
  - Interstitial lung disease [Unknown]
